FAERS Safety Report 9564536 (Version 1)
Quarter: 2013Q3

REPORT INFORMATION
  Report Type: Spontaneous
  Country: US (occurrence: US)
  Receive Date: 20130930
  Receipt Date: 20130930
  Transmission Date: 20140515
  Serious: No
  Sender: FDA-Public Use
  Company Number: US-PFIZER INC-2013277993

PATIENT
  Age: 69 Year
  Sex: Female
  Weight: 65.31 kg

DRUGS (4)
  1. LYRICA [Suspect]
     Indication: NEURALGIA
     Dosage: 25 MG, 1X/DAY
     Dates: start: 2009
  2. LYRICA [Suspect]
     Indication: FIBROMYALGIA
     Dosage: 75 MG, 1X/DAY
     Dates: start: 2009
  3. PLAQUENIL [Concomitant]
     Indication: ARTHRITIS
     Dosage: UNK
  4. HYDROCODONE [Concomitant]
     Indication: BACK PAIN
     Dosage: UNK

REACTIONS (4)
  - Memory impairment [Recovered/Resolved]
  - Somnolence [Unknown]
  - Malaise [Recovered/Resolved]
  - Feeling abnormal [Recovered/Resolved]
